FAERS Safety Report 4577897-8 (Version None)
Quarter: 2005Q1

REPORT INFORMATION
  Report Type: 
  Country: None (occurrence: None)
  Receive Date: 20050209
  Receipt Date: 20050126
  Transmission Date: 20050727
  Serious: Yes (Other)
  Sender: FDA-Public Use
  Company Number: FR_050105716

PATIENT
  Age: 59 Year

DRUGS (2)
  1. GEMCITABINE HYDROCHLORIDE-IV (GEMCITABINE) [Suspect]
     Indication: BRONCHIAL CARCINOMA
  2. CISPLATIN [Concomitant]

REACTIONS (6)
  - FOLATE DEFICIENCY [None]
  - HYPERTRIGLYCERIDAEMIA [None]
  - MITOCHONDRIAL TOXICITY [None]
  - POLYNEUROPATHY [None]
  - RADICULOPATHY [None]
  - VITAMIN B12 DEFICIENCY [None]
